FAERS Safety Report 7989274-8 (Version None)
Quarter: 2011Q4

REPORT INFORMATION
  Report Type: 
  Country: None (occurrence: None)
  Receive Date: 20111007
  Receipt Date: 20110719
  Transmission Date: 20120403
  Serious: No
  Sender: FDA-Public Use
  Company Number: 2011HGS-002342

PATIENT
  Age: 20 Year
  Sex: Female

DRUGS (3)
  1. BENLYSTA [Suspect]
     Indication: SYSTEMIC LUPUS ERYTHEMATOSUS
     Dosage: 10 MG/KG, IN 1 IN 14 D, INTRAVENOUS DRIP
     Route: 041
     Dates: start: 20110602
  2. IMURAN [Concomitant]
  3. PLAQUENIL (HYDROXYCHLOROQUINE SULFATE)(HYDROXYCHLOROQUINE SULFATE [Concomitant]

REACTIONS (1)
  - APHASIA [None]
